FAERS Safety Report 4555412-2 (Version None)
Quarter: 2005Q1

REPORT INFORMATION
  Report Type: 
  Country: None (occurrence: None)
  Receive Date: 20041228
  Receipt Date: 20041027
  Transmission Date: 20050727
  Serious: Yes (Other)
  Sender: FDA-Public Use
  Company Number: PHEH2004US11635

PATIENT
  Age: 76 Year
  Sex: Male

DRUGS (5)
  1. PAMIDRONATE DISODIUM [Suspect]
  2. HYTRIN [Concomitant]
  3. THALIDOMIDE (THALIDOMIDE) [Concomitant]
  4. PREDNISONE [Concomitant]
  5. NEXIUM [Concomitant]

REACTIONS (3)
  - ASEPTIC NECROSIS BONE [None]
  - BONE DISORDER [None]
  - TOOTH EXTRACTION [None]
